FAERS Safety Report 11221895 (Version 2)
Quarter: 2016Q1

REPORT INFORMATION
  Report Type: Spontaneous
  Country: US (occurrence: US)
  Receive Date: 20150626
  Receipt Date: 20160219
  Transmission Date: 20160525
  Serious: No
  Sender: FDA-Public Use
  Company Number: US-ELI_LILLY_AND_COMPANY-US201506003213

PATIENT
  Age: 10 Year
  Sex: Male

DRUGS (4)
  1. FOCALIN                            /01611102/ [Concomitant]
     Dosage: UNK, UNKNOWN
     Route: 065
  2. HUMATROPE [Suspect]
     Active Substance: SOMATROPIN
     Indication: PREMATURE DELIVERY
     Dosage: 1.60 MG, UNKNOWN
     Route: 065
  3. HUMATROPE [Suspect]
     Active Substance: SOMATROPIN
     Indication: DEVELOPMENTAL DELAY
  4. HUMATROPE [Suspect]
     Active Substance: SOMATROPIN
     Indication: GROWTH HORMONE DEFICIENCY

REACTIONS (4)
  - Off label use [Unknown]
  - Injection site pain [Unknown]
  - Scratch [Unknown]
  - Underdose [Unknown]

NARRATIVE: CASE EVENT DATE: 20160201
